FAERS Safety Report 9102530 (Version 1)
Quarter: 2013Q1

REPORT INFORMATION
  Report Type: Spontaneous
  Country: US (occurrence: US)
  Receive Date: 20130218
  Receipt Date: 20130218
  Transmission Date: 20140127
  Serious: Yes (Other)
  Sender: FDA-Public Use
  Company Number: PHEH2012US005637

PATIENT
  Age: 87 Year
  Sex: Male
  Weight: 60.77 kg

DRUGS (4)
  1. EXJADE [Suspect]
     Indication: IRON OVERLOAD
     Dosage: 1250 MG, ONCE DAILY
     Route: 048
     Dates: start: 20120214
  2. EXJADE [Suspect]
     Indication: SERUM FERRITIN INCREASED
     Dosage: 1250 MG, QD
     Route: 048
     Dates: start: 20120514, end: 201207
  3. EXJADE [Suspect]
     Dosage: 1250 MG, QD
     Route: 048
     Dates: end: 20120807
  4. FOLIC ACID [Concomitant]

REACTIONS (4)
  - Pneumonia [Unknown]
  - Diarrhoea [Unknown]
  - Platelet count decreased [Unknown]
  - Serum ferritin decreased [Recovering/Resolving]
